FAERS Safety Report 23359689 (Version 1)
Quarter: 2024Q1

REPORT INFORMATION
  Report Type: Spontaneous
  Country: GB (occurrence: GB)
  Receive Date: 20240103
  Receipt Date: 20240103
  Transmission Date: 20240410
  Serious: Yes (Other)
  Sender: FDA-Public Use
  Company Number: None

PATIENT
  Age: 73 Year
  Weight: 47 kg

DRUGS (22)
  1. PREDNISOLONE [Suspect]
     Active Substance: PREDNISOLONE
     Route: 065
  2. METOCLOPRAMIDE [Concomitant]
     Active Substance: METOCLOPRAMIDE
     Dosage: UP TO THREE TIMES A DAY.
     Dates: start: 20230810
  3. SODIUM CHLORIDE [Concomitant]
     Active Substance: SODIUM CHLORIDE
     Dosage: USE AS DIRECTED
     Dates: start: 20231127
  4. MORPHINE SULFATE [Concomitant]
     Active Substance: MORPHINE SULFATE
     Dosage: TAKE 2.5ML - 5ML (5MG-10MG) EVERY FOUR HOURS WH
     Dates: start: 20230517
  5. CARBOCYSTEINE [Concomitant]
     Active Substance: CARBOCYSTEINE
     Dosage: TIME INTERVAL: 0.33333333 DAYS
     Dates: start: 20230201
  6. NYSTATIN [Concomitant]
     Active Substance: NYSTATIN
     Dosage: USE IN THE MOUTH AS DIRECTED
     Dates: start: 20231127, end: 20231204
  7. NORTRIPTYLINE [Concomitant]
     Active Substance: NORTRIPTYLINE
     Dosage: NIGHT
     Dates: start: 20230201
  8. DIAZEPAM [Concomitant]
     Active Substance: DIAZEPAM
     Indication: Dyspnoea
     Dosage: TIME INTERVAL: AS NECESSARY: UP TO FOUR TIMES PER DAY
     Dates: start: 20231129, end: 20231206
  9. AMOXICILLIN [Concomitant]
     Active Substance: AMOXICILLIN
     Dosage: TIME INTERVAL: 0.33333333 DAYS
     Dates: start: 20231120, end: 20231127
  10. ACETAMINOPHEN [Concomitant]
     Active Substance: ACETAMINOPHEN
     Dosage: IF WEIGHT BETWEEN 30KG AND 39KG: DOSE REDUCTION
     Route: 065
     Dates: start: 20230620
  11. MACROGOL COMPOUND [Concomitant]
     Dates: start: 20230619
  12. IPRATROPIUM BROMIDE [Concomitant]
     Active Substance: IPRATROPIUM BROMIDE\IPRATROPIUM BROMIDE ANHYDROUS
     Indication: Dyspnoea
     Dosage: USE ONE IN NEBULISER UP TO TWICE DAILY
     Dates: start: 20231127
  13. DOCUSATE SODIUM [Concomitant]
     Active Substance: DOCUSATE SODIUM
     Indication: Constipation
     Dosage: AS NEEDED
     Dates: start: 20230202
  14. DERMOL [Concomitant]
     Active Substance: BENZALKONIUM CHLORIDE\CHLORHEXIDINE HYDROCHLORIDE\ISOPROPYL MYRISTATE\PARAFFIN
     Dosage: APPLY AS DIRECTED AS A SKIN MOISTURISER AND AS
     Dates: start: 20231103
  15. VENTOLIN [Concomitant]
     Active Substance: ALBUTEROL SULFATE
     Dosage: WHEN NEEDED UP
     Dates: start: 20230201
  16. BECLOMETHASONE\FORMOTEROL [Concomitant]
     Active Substance: BECLOMETHASONE\FORMOTEROL
     Dosage: PUFFS
     Dates: start: 20230609
  17. FERROUS FUMARATE [Concomitant]
     Active Substance: FERROUS FUMARATE
     Dates: start: 20230619, end: 20230925
  18. OMEPRAZOLE [Concomitant]
     Active Substance: OMEPRAZOLE
     Dosage: TO HELP PREVENT IND
     Dates: start: 20230907
  19. TIOTROPIUM BROMIDE [Concomitant]
     Active Substance: TIOTROPIUM BROMIDE
     Dates: start: 20230201
  20. BUTYLSCOPOLAMINE BROMIDE [Concomitant]
     Active Substance: BUTYLSCOPOLAMINE BROMIDE
     Dosage: TIME INTERVAL: AS NECESSARY: UP TO 4 TIMES/DAY FOR EXCESSIVE SECRET
     Dates: start: 20230620, end: 20230925
  21. LORAZEPAM [Concomitant]
     Active Substance: LORAZEPAM
     Dosage: TIME INTERVAL: AS NECESSARY: MAXIMUM 2MG/ 24 HOURS
     Dates: start: 20231127
  22. ALBUTEROL [Concomitant]
     Active Substance: ALBUTEROL
     Indication: Dyspnoea
     Dosage: AS ADVISED BY HOSPITAL TEAM
     Dates: start: 20231127

REACTIONS (3)
  - Anxiety [Recovered/Resolved]
  - Psychomotor hyperactivity [Unknown]
  - Restlessness [Unknown]
